FAERS Safety Report 21720261 (Version 1)
Quarter: 2022Q4

REPORT INFORMATION
  Report Type: Spontaneous
  Country: US (occurrence: US)
  Receive Date: 20221213
  Receipt Date: 20221213
  Transmission Date: 20230112
  Serious: Yes (Other)
  Sender: FDA-Public Use
  Company Number: US-AMGEN-USASP2022208243

PATIENT
  Age: 46 Year
  Sex: Female

DRUGS (1)
  1. RITUXIMAB [Suspect]
     Active Substance: RITUXIMAB
     Indication: Thrombotic thrombocytopenic purpura
     Dosage: UNK
     Route: 065

REACTIONS (6)
  - Autoimmune hepatitis [Unknown]
  - Glomerulonephritis membranous [Unknown]
  - Renal tubular injury [Unknown]
  - Kidney fibrosis [Unknown]
  - Renal tubular atrophy [Unknown]
  - Off label use [Unknown]
